FAERS Safety Report 8037888 (Version 2)
Quarter: 2014Q4

REPORT INFORMATION
  Report Type: Report from Study
  Country: AR (occurrence: AR)
  Receive Date: 20110715
  Receipt Date: 20141209
  Transmission Date: 20150529
  Serious: Yes (Hospitalization, Other)
  Sender: FDA-Public Use
  Company Number: PHHY2011AR59136

PATIENT
  Age: 79 Year
  Sex: Female

DRUGS (3)
  1. EXFORGE [Suspect]
     Active Substance: AMLODIPINE BESYLATE\VALSARTAN
     Dosage: 1 DF, UNK
     Route: 048
  2. EXFORGE [Suspect]
     Active Substance: AMLODIPINE BESYLATE\VALSARTAN
     Indication: HYPERTENSION
     Dosage: 1 DF, QD
     Route: 048
  3. EXFORGE [Suspect]
     Active Substance: AMLODIPINE BESYLATE\VALSARTAN
     Dosage: 1 DF, UNK
     Route: 048

REACTIONS (7)
  - Infarction [Recovered/Resolved]
  - Blood pressure increased [Recovered/Resolved]
  - Cataract [Recovered/Resolved]
  - Oedema peripheral [Recovered/Resolved]
  - Palpitations [Recovered/Resolved]
  - Arterial occlusive disease [Recovered/Resolved]
  - Dyspnoea [Recovered/Resolved]

NARRATIVE: CASE EVENT DATE: 20110425
